FAERS Safety Report 7311403-X (Version None)
Quarter: 2011Q1

REPORT INFORMATION
  Report Type: 
  Country: None (occurrence: None)
  Receive Date: 20110224
  Receipt Date: 20110217
  Transmission Date: 20110831
  Serious: Yes (Other)
  Sender: FDA-Public Use
  Company Number: US-PFIZER INC-2011035983

PATIENT
  Sex: Female
  Weight: 54.422 kg

DRUGS (2)
  1. TETRACYCLINE [Concomitant]
     Indication: ACNE
     Dosage: UNK
  2. EFFEXOR XR [Suspect]
     Indication: DEPRESSION
     Dosage: 75 MG, 1X/DAY
     Route: 048
     Dates: start: 20101201

REACTIONS (9)
  - ANXIETY [None]
  - HEART RATE INCREASED [None]
  - VOMITING [None]
  - DEPRESSION [None]
  - SUICIDE ATTEMPT [None]
  - WEIGHT DECREASED [None]
  - DRUG INEFFECTIVE [None]
  - DRUG SCREEN POSITIVE [None]
  - ACNE [None]
